FAERS Safety Report 8067778-X (Version None)
Quarter: 2012Q1

REPORT INFORMATION
  Report Type: 
  Country: None (occurrence: None)
  Receive Date: 20120124
  Receipt Date: 20120117
  Transmission Date: 20120608
  Serious: Yes (Other)
  Sender: FDA-Public Use
  Company Number: JP-EISAI INC-E2090-01919-SPO-JP

PATIENT
  Sex: Female

DRUGS (1)
  1. ZONISAMIDE [Suspect]
     Dosage: 200 MG
     Route: 048
     Dates: start: 20111209, end: 20111218

REACTIONS (1)
  - TOXIC SKIN ERUPTION [None]
